FAERS Safety Report 10257381 (Version 1)
Quarter: 2014Q2

REPORT INFORMATION
  Report Type: Report from Study
  Country: FR (occurrence: FR)
  Receive Date: 20140625
  Receipt Date: 20140625
  Transmission Date: 20141212
  Serious: Yes (Hospitalization, Disabling, Other)
  Sender: FDA-Public Use
  Company Number: FR-JNJFOC-20140613761

PATIENT
  Age: 82 Year
  Sex: Male
  Weight: 93 kg

DRUGS (13)
  1. XARELTO [Suspect]
     Indication: ATRIAL FIBRILLATION
     Route: 048
  2. XARELTO [Suspect]
     Indication: ATRIAL FIBRILLATION
     Route: 048
     Dates: start: 20121212, end: 20131012
  3. XARELTO [Suspect]
     Indication: CEREBROVASCULAR ACCIDENT PROPHYLAXIS
     Route: 048
     Dates: start: 20121212, end: 20131012
  4. XARELTO [Suspect]
     Indication: CEREBROVASCULAR ACCIDENT PROPHYLAXIS
     Route: 048
  5. VALSARTAN [Concomitant]
     Route: 065
     Dates: start: 2008
  6. ALLOPURINOL [Concomitant]
     Route: 065
     Dates: start: 2008
  7. PREVISCAN (FLUINDIONE) [Concomitant]
     Route: 065
     Dates: start: 20131012
  8. AMIODARONE [Concomitant]
     Route: 065
     Dates: start: 20121209
  9. CARDENSIEL [Concomitant]
     Route: 065
     Dates: start: 20121214
  10. ALPRAZOLAM [Concomitant]
     Route: 065
     Dates: start: 20121209
  11. PAROXETINE [Concomitant]
     Route: 065
     Dates: start: 20121210
  12. PERMIXON [Concomitant]
     Route: 065
     Dates: start: 2008
  13. TAHOR [Concomitant]
     Route: 065
     Dates: start: 20121209

REACTIONS (4)
  - Patella fracture [Recovered/Resolved]
  - Fall [Recovered/Resolved]
  - Confusional state [Recovered/Resolved]
  - Haematoma [Recovered/Resolved]
